FAERS Safety Report 4476979-9 (Version None)
Quarter: 2004Q4

REPORT INFORMATION
  Report Type: 
  Country: None (occurrence: None)
  Receive Date: 20041018
  Receipt Date: 20041007
  Transmission Date: 20050328
  Serious: Yes (Hospitalization)
  Sender: FDA-Public Use
  Company Number: JP-JNJFOC-20040401125

PATIENT
  Sex: Male
  Weight: 68 kg

DRUGS (7)
  1. REMICADE [Suspect]
     Route: 041
     Dates: start: 20040117, end: 20040228
  2. REMICADE [Suspect]
     Route: 041
     Dates: start: 20040117, end: 20040228
  3. REMICADE [Suspect]
     Indication: RHEUMATOID ARTHRITIS
     Route: 041
     Dates: start: 20040117, end: 20040228
  4. RHEUMATREX [Concomitant]
     Route: 065
     Dates: start: 20030618
  5. MOVER [Concomitant]
  6. VOLTAREN [Concomitant]
  7. SELBEX [Concomitant]

REACTIONS (5)
  - ARTHRITIS BACTERIAL [None]
  - C-REACTIVE PROTEIN INCREASED [None]
  - GROIN PAIN [None]
  - MONARTHRITIS [None]
  - PYREXIA [None]
